FAERS Safety Report 8849136 (Version 2)
Quarter: 2013Q1

REPORT INFORMATION
  Report Type: Spontaneous
  Country: FR (occurrence: None)
  Receive Date: 20121016
  Receipt Date: 20121102
  Transmission Date: 20140127
  Serious: Yes (Hospitalization, Other)
  Sender: FDA-Public Use
  Company Number: VAL_00916_2012

PATIENT
  Age: 28 Year
  Sex: Female

DRUGS (1)
  1. PARLODEL [Suspect]
     Indication: LACTATION DISORDER
     Dosage: (DF)

REACTIONS (8)
  - Myocardial infarction [None]
  - Malaise [None]
  - Dysarthria [None]
  - Peripheral ischaemia [None]
  - Peripheral arterial occlusive disease [None]
  - Arterial occlusive disease [None]
  - Protein S deficiency [None]
  - Arteriospasm coronary [None]
